FAERS Safety Report 16092079 (Version 4)
Quarter: 2019Q2

REPORT INFORMATION
  Report Type: Report from Study
  Country: US (occurrence: US)
  Receive Date: 20190319
  Receipt Date: 20190624
  Transmission Date: 20190711
  Serious: No
  Sender: FDA-Public Use
  Company Number: PHEH2019US011688

PATIENT
  Age: 17 Year
  Sex: Female
  Weight: 84 kg

DRUGS (2)
  1. ILARIS [Suspect]
     Active Substance: CANAKINUMAB
     Dosage: 150 MG, Q4W
     Route: 058
     Dates: start: 20190425
  2. ILARIS [Suspect]
     Active Substance: CANAKINUMAB
     Indication: AUTOINFLAMMATORY DISEASE
     Dosage: 150 MG, QMO
     Route: 058
     Dates: start: 20190307

REACTIONS (7)
  - Body temperature decreased [Unknown]
  - Nausea [Recovered/Resolved]
  - Inflammation [Unknown]
  - Feeling abnormal [Unknown]
  - Ear congestion [Recovered/Resolved]
  - Stomatitis [Unknown]
  - Lethargy [Recovered/Resolved]

NARRATIVE: CASE EVENT DATE: 20190523
